FAERS Safety Report 8879119 (Version 1)
Quarter: 2012Q4

REPORT INFORMATION
  Report Type: Spontaneous
  Country: US (occurrence: None)
  Receive Date: 20121031
  Receipt Date: 20121031
  Transmission Date: 20130627
  Serious: No
  Sender: FDA-Public Use
  Company Number: None

PATIENT
  Age: 69 Year
  Sex: Female
  Weight: 93.9 kg

DRUGS (2)
  1. LISINOPRIL [Suspect]
     Indication: HYPERTENSION
     Route: 048
     Dates: start: 19961028, end: 20121022
  2. POTASSIUM CHLORIDE [Suspect]
     Route: 048
     Dates: start: 20110721, end: 20121022

REACTIONS (1)
  - Hyperkalaemia [None]
